FAERS Safety Report 6697379-7 (Version None)
Quarter: 2010Q2

REPORT INFORMATION
  Report Type: 
  Country: None (occurrence: None)
  Receive Date: 20100426
  Receipt Date: 20100415
  Transmission Date: 20101027
  Serious: Yes (Hospitalization)
  Sender: FDA-Public Use
  Company Number: JP-ASTRAZENECA-2010SE17598

PATIENT
  Age: 25 Year
  Sex: Male

DRUGS (7)
  1. SEROQUEL [Suspect]
     Indication: SCHIZOPHRENIA
     Route: 048
  2. SULPIRIDE [Suspect]
     Route: 048
  3. AMOBAN [Suspect]
     Route: 048
  4. DEPAKENE [Suspect]
     Route: 048
  5. HIRNAMIN [Suspect]
     Route: 048
  6. BIBITTOACE [Suspect]
     Route: 048
  7. PARULEON [Suspect]
     Route: 048

REACTIONS (2)
  - ALTERED STATE OF CONSCIOUSNESS [None]
  - PNEUMONIA ASPIRATION [None]
